FAERS Safety Report 25337497 (Version 3)
Quarter: 2025Q2

REPORT INFORMATION
  Report Type: Report from Study
  Country: US (occurrence: US)
  Receive Date: 20250520
  Receipt Date: 20250617
  Transmission Date: 20250717
  Serious: Yes (Other)
  Sender: NOVARTIS
  Company Number: US-002147023-NVSC2025US080874

PATIENT
  Age: 75 Year
  Sex: Male
  Weight: 89.811 kg

DRUGS (2)
  1. LEQVIO [Suspect]
     Active Substance: INCLISIRAN SODIUM
     Indication: Hyperlipidaemia
     Dosage: 1 MG, QD
     Route: 065
     Dates: start: 20250512
  2. LEQVIO [Suspect]
     Active Substance: INCLISIRAN SODIUM
     Indication: Essential hypertension
     Route: 058
     Dates: start: 20250514

REACTIONS (2)
  - Nasopharyngitis [Recovered/Resolved]
  - Concomitant disease aggravated [Recovered/Resolved]

NARRATIVE: CASE EVENT DATE: 20250512
